FAERS Safety Report 7608998-5 (Version None)
Quarter: 2011Q3

REPORT INFORMATION
  Report Type: 
  Country: None (occurrence: None)
  Receive Date: 20110714
  Receipt Date: 20110707
  Transmission Date: 20111222
  Serious: Yes (Hospitalization)
  Sender: FDA-Public Use
  Company Number: AT-PFIZER INC-2011152474

PATIENT
  Age: 44 Year
  Sex: Female
  Weight: 105.9 kg

DRUGS (9)
  1. SINTROM [Concomitant]
     Route: 048
  2. TRAZODONE HCL [Concomitant]
     Dosage: 100 MG, 1X/DAY
     Route: 048
  3. CLINDAMYCIN HCL [Suspect]
     Indication: ERYSIPELAS
     Dosage: 1 DF, SINGLE
     Route: 042
     Dates: start: 20100927, end: 20100927
  4. RAMIPRIL [Concomitant]
     Dosage: 10 MG, 1X/DAY
     Route: 048
  5. CIPROFLOXACIN [Suspect]
     Indication: ERYSIPELAS
     Dosage: 1 DF, SINGLE
     Route: 042
     Dates: start: 20100927, end: 20100927
  6. ZELDOX /SWE/ [Concomitant]
     Dosage: 40 MG, 2X/DAY
     Route: 048
  7. TOLTERODINE TARTRATE [Concomitant]
     Dosage: 2 MG, 2X/DAY
     Route: 048
  8. PANTOPRAZOLE SODIUM [Concomitant]
     Route: 048
  9. TOPAMAX [Concomitant]
     Dosage: 200 MG, 1X/DAY
     Route: 048

REACTIONS (2)
  - TYPE IV HYPERSENSITIVITY REACTION [None]
  - DRUG ERUPTION [None]
